FAERS Safety Report 7655477-5 (Version None)
Quarter: 2011Q3

REPORT INFORMATION
  Report Type: 
  Country: None (occurrence: None)
  Receive Date: 20110804
  Receipt Date: 20110727
  Transmission Date: 20111222
  Serious: Yes (Other)
  Sender: FDA-Public Use
  Company Number: AU-ASTELLAS-2011JP005218

PATIENT
  Sex: Female
  Weight: 80 kg

DRUGS (3)
  1. YASMIN [Concomitant]
     Route: 065
  2. SOLIFENACIN SUCCINATE [Suspect]
     Indication: URINARY INCONTINENCE
     Dosage: 5 MG, UNKNOWN/D
     Route: 048
     Dates: start: 20100605, end: 20110407
  3. VOLTAREN [Concomitant]
     Indication: ARTHRITIS
     Route: 065

REACTIONS (2)
  - SLEEP DISORDER [None]
  - ABNORMAL DREAMS [None]
